FAERS Safety Report 21259171 (Version 2)
Quarter: 2022Q3

REPORT INFORMATION
  Report Type: Spontaneous
  Country: US (occurrence: US)
  Receive Date: 20220826
  Receipt Date: 20220929
  Transmission Date: 20221027
  Serious: Yes (Life-Threatening, Hospitalization, Other)
  Sender: FDA-Public Use
  Company Number: US-LUPIN PHARMACEUTICALS INC.-2022-10538

PATIENT
  Age: 32 Year
  Sex: Female

DRUGS (15)
  1. MISOPROSTOL [Suspect]
     Active Substance: MISOPROSTOL
     Indication: Labour induction
     Dosage: 25 MICROGRAM, UNK
     Route: 060
  2. METHYLERGONOVINE [Suspect]
     Active Substance: METHYLERGONOVINE
     Indication: Uterine atony
     Dosage: 200 MICROGRAM, UNK
     Route: 030
  3. OXYTOCIN [Suspect]
     Active Substance: OXYTOCIN
     Indication: Labour induction
     Dosage: 0.24 INTERNATIONAL UNIT, UNK (STARTED AT 0.24 U/H AND RANGING FROM 0.04 U/H TO 1.2 U/H)
     Route: 065
  4. OXYTOCIN [Suspect]
     Active Substance: OXYTOCIN
     Indication: Uterine atony
     Dosage: 20 INTERNATIONAL UNIT, UNK
     Route: 065
  5. MAGNESIUM SULFATE [Suspect]
     Active Substance: MAGNESIUM SULFATE
     Indication: Hypertension
     Dosage: 6 GRAM, UNK
     Route: 065
  6. MAGNESIUM SULFATE [Suspect]
     Active Substance: MAGNESIUM SULFATE
     Dosage: UNK (FOLLOWED BY AN INFUSION RANGING BETWEEN 1.5 TO 2.0 G/H)
     Route: 042
  7. LABETALOL [Suspect]
     Active Substance: LABETALOL\LABETALOL HYDROCHLORIDE
     Indication: Hypertension
     Dosage: 10 MG, UNK
     Route: 042
  8. LACTATED RINGERS SOLUTION [Suspect]
     Active Substance: CALCIUM CHLORIDE\POTASSIUM CHLORIDE\SODIUM CHLORIDE\SODIUM LACTATE
     Indication: Fluid replacement
     Dosage: 1500 MILLILITER, UNK (3 FLUID BOLUSES (500 ML EACH) OF LACTATED RINGER^S SOLUTION OVER 4 HOURS), ROU
     Route: 050
  9. BUPIVACAINE [Suspect]
     Active Substance: BUPIVACAINE
     Indication: Epidural analgesia
     Dosage: UNK (EPIDURAL INFUSION CONSISTING OF 0.125% BUPIVACAINE WITH FENTANYL ADMINISTERED AT 6 ML/H)
     Route: 008
  10. FENTANYL [Suspect]
     Active Substance: FENTANYL
     Indication: Epidural analgesia
     Dosage: UNK (EPIDURAL INFUSION CONSISTING OF BUPIVACAINE WITH FENTANYL 2 MCG/ML ADMINISTERED AT 6 ML/H)
     Route: 008
  11. FUROSEMIDE [Suspect]
     Active Substance: FUROSEMIDE
     Indication: Diuretic therapy
     Dosage: 10 MG, UNK
     Route: 042
  12. FUROSEMIDE [Suspect]
     Active Substance: FUROSEMIDE
     Dosage: 10 MG, UNK
     Route: 042
  13. LIDOCAINE [Suspect]
     Active Substance: LIDOCAINE
     Indication: Epidural anaesthesia
     Dosage: UNK (THE EPIDURAL CATHETER WAS BOLUSED INCREMENTALLY WITH A SOLUTION COMPRISING OF LIDOCAINE 2% WITH
     Route: 008
  14. SODIUM BICARBONATE [Suspect]
     Active Substance: SODIUM BICARBONATE
     Indication: Vehicle solution use
     Dosage: UNK (THE EPIDURAL CATHETER WAS BOLUSED INCREMENTALLY WITH A SOLUTION COMPRISING OF LIDOCAINE WITH 1
     Route: 008
  15. CARBOPROST TROMETHAMINE [Suspect]
     Active Substance: CARBOPROST TROMETHAMINE
     Indication: Uterine atony
     Dosage: 250 MICROGRAM, UNK
     Route: 030

REACTIONS (5)
  - Acute pulmonary oedema [Recovering/Resolving]
  - Mental status changes [Recovering/Resolving]
  - Acute respiratory failure [Recovering/Resolving]
  - Exposure during pregnancy [Unknown]
  - Off label use [Unknown]
